FAERS Safety Report 13237640 (Version 1)
Quarter: 2017Q1

REPORT INFORMATION
  Report Type: Spontaneous
  Country: GB (occurrence: AF)
  Receive Date: 20170215
  Receipt Date: 20170215
  Transmission Date: 20170428
  Serious: Yes (Hospitalization)
  Sender: FDA-Public Use
  Company Number: None

PATIENT
  Age: 34 Year
  Sex: Female
  Weight: 39 kg

DRUGS (1)
  1. DOXIL [Suspect]
     Active Substance: DOXORUBICIN HYDROCHLORIDE
     Dates: end: 20170126

REACTIONS (4)
  - Abdominal distension [None]
  - Vomiting [None]
  - Small intestinal obstruction [None]
  - Pyrexia [None]

NARRATIVE: CASE EVENT DATE: 20170204
